FAERS Safety Report 8197688 (Version 2)
Quarter: 2012Q4

REPORT INFORMATION
  Report Type: 
  Country: US (occurrence: US)
  Receive Date: 20111025
  Receipt Date: 20121115
  Transmission Date: 20130627
  Serious: Yes (Other)
  Sender: FDA-Public Use
  Company Number: US-ELI_LILLY_AND_COMPANY-US201110004574

PATIENT
  Age: 56 Year
  Sex: Female

DRUGS (14)
  1. LASIX [Concomitant]
     Dosage: 40 mg, qd
     Route: 048
  2. LEVOTHYROXINE [Concomitant]
     Dosage: 100 ug, qd
  3. TOPROL [Concomitant]
     Dosage: 50 mg, qd
     Route: 048
  4. TRAMADOL [Concomitant]
     Dosage: 50 mg, bid
  5. PREMARIN [Concomitant]
     Dosage: 1.25 mg, qd
     Route: 048
  6. FLEXERIL [Concomitant]
     Dosage: 10 mg, qd
  7. CARBAMAZEPINE [Concomitant]
     Dosage: 100 mg, qd
  8. BYETTA [Suspect]
     Dosage: 10 ug, bid
     Route: 058
     Dates: start: 20070109, end: 200906
  9. SPIRONOLACTONE [Concomitant]
     Dosage: 50 mg, qd
  10. FEXOFENADINE [Concomitant]
     Dosage: 180 mg, qd
  11. OMEPRAZOLE [Concomitant]
     Dosage: 20 mg, qd
     Route: 048
  12. FLUOXETINE [Concomitant]
     Dosage: 20 mg, qd
     Route: 048
  13. METFORMIN [Concomitant]
     Dosage: 500 mg, qd
  14. ALLOPURINOL [Concomitant]
     Dosage: 300 mg, qd
     Route: 048

REACTIONS (2)
  - Renal failure chronic [Recovering/Resolving]
  - Pancreatitis [Unknown]
